FAERS Safety Report 16436138 (Version 1)
Quarter: 2019Q2

REPORT INFORMATION
  Report Type: Spontaneous
  Country: US (occurrence: US)
  Receive Date: 20190614
  Receipt Date: 20190614
  Transmission Date: 20190711
  Serious: No
  Sender: FDA-Public Use
  Company Number: US-JNJFOC-20190610519

PATIENT
  Sex: Female
  Weight: 85.73 kg

DRUGS (4)
  1. ASPIRIN. [Concomitant]
     Active Substance: ASPIRIN
     Indication: PERIPHERAL SWELLING
     Route: 065
     Dates: start: 20190522
  2. TYLENOL [Suspect]
     Active Substance: ACETAMINOPHEN
     Route: 065
  3. XELJANZ [Concomitant]
     Active Substance: TOFACITINIB CITRATE
     Indication: RHEUMATOID ARTHRITIS
     Dosage: 1 IN MORNING AND 1 IN NIGHT
     Route: 048
     Dates: start: 201706
  4. TYLENOL [Suspect]
     Active Substance: ACETAMINOPHEN
     Indication: PERIPHERAL SWELLING
     Route: 065
     Dates: start: 20190522

REACTIONS (1)
  - Product use in unapproved indication [Unknown]
